FAERS Safety Report 23336335 (Version 2)
Quarter: 2024Q2

REPORT INFORMATION
  Report Type: Report from Study
  Country: US (occurrence: US)
  Receive Date: 20231225
  Receipt Date: 20240406
  Transmission Date: 20240715
  Serious: Yes (Hospitalization, Other)
  Sender: FDA-Public Use
  Company Number: US-ABBVIE-5553483

PATIENT
  Age: 52 Year
  Sex: Female

DRUGS (2)
  1. SKYRIZI [Suspect]
     Active Substance: RISANKIZUMAB-RZAA
     Indication: Psoriasis
     Route: 058
     Dates: start: 2022
  2. SKYRIZI [Suspect]
     Active Substance: RISANKIZUMAB-RZAA
     Dosage: LAST ADMIN DATE: 2021
     Route: 058
     Dates: start: 20211203

REACTIONS (6)
  - Hip fracture [Recovering/Resolving]
  - White blood cell count decreased [Recovering/Resolving]
  - Fall [Recovering/Resolving]
  - Wrist fracture [Unknown]
  - Psoriasis [Unknown]
  - Hyperglycaemia [Unknown]

NARRATIVE: CASE EVENT DATE: 20211201
